FAERS Safety Report 13770563 (Version 1)
Quarter: 2017Q3

REPORT INFORMATION
  Report Type: Spontaneous
  Country: IT (occurrence: IT)
  Receive Date: 20170719
  Receipt Date: 20170719
  Transmission Date: 20171127
  Serious: Yes (Other)
  Sender: FDA-Public Use
  Company Number: IT-BAYER-2017-131068

PATIENT
  Age: 24 Year
  Sex: Female
  Weight: 116 kg

DRUGS (1)
  1. YASMIN [Suspect]
     Active Substance: DROSPIRENONE\ETHINYL ESTRADIOL
     Indication: OVARIAN CYST
     Dosage: 3 MG, QD
     Route: 048
     Dates: start: 20151219, end: 20160325

REACTIONS (1)
  - Fibroadenoma of breast [Recovered/Resolved with Sequelae]

NARRATIVE: CASE EVENT DATE: 20160401
